FAERS Safety Report 11217865 (Version 1)
Quarter: 2015Q2

REPORT INFORMATION
  Report Type: Spontaneous
  Country: US (occurrence: None)
  Receive Date: 20150624
  Receipt Date: 20150624
  Transmission Date: 20150821
  Serious: Yes (Hospitalization)
  Sender: FDA-Public Use
  Company Number: None

PATIENT
  Age: 66 Year
  Sex: Male
  Weight: 137.3 kg

DRUGS (2)
  1. IBUPROFEN. [Suspect]
     Active Substance: IBUPROFEN
     Indication: PAIN
     Dosage: 400 MG (2 TABS) AS NEEDED FOR PAIN MG EVERY DAY PO
     Route: 048
     Dates: start: 20150526, end: 20150615
  2. WARFARIN [Suspect]
     Active Substance: WARFARIN
     Indication: ATRIAL FIBRILLATION
     Dosage: 12.5 MG DAILY EXCEPT 10 MG ON TUE/THUR/SAT MG EVERY DAY PO
     Route: 048
     Dates: start: 20130906

REACTIONS (4)
  - Gastric haemorrhage [None]
  - International normalised ratio abnormal [None]
  - Haemoptysis [None]
  - Treatment noncompliance [None]

NARRATIVE: CASE EVENT DATE: 20150529
